FAERS Safety Report 4992838-7 (Version None)
Quarter: 2006Q2

REPORT INFORMATION
  Report Type: 
  Country: None (occurrence: None)
  Receive Date: 20060504
  Receipt Date: 20050811
  Transmission Date: 20061013
  Serious: Yes (Hospitalization)
  Sender: FDA-Public Use
  Company Number: US-MERCK-0508USA02114

PATIENT
  Age: 47 Year
  Sex: Female
  Weight: 59 kg

DRUGS (33)
  1. VIOXX [Suspect]
     Indication: BACK PAIN
     Route: 048
     Dates: start: 20000803, end: 20040814
  2. VIOXX [Suspect]
     Indication: MUSCULOSKELETAL STIFFNESS
     Route: 048
     Dates: start: 20000803, end: 20040814
  3. TYLENOL (CAPLET) [Concomitant]
     Route: 065
  4. ASPIRIN [Concomitant]
     Route: 065
  5. SPORANOX [Concomitant]
     Route: 065
  6. IMITREX [Concomitant]
     Route: 065
     Dates: start: 19990629
  7. ENDOCET [Concomitant]
     Route: 065
     Dates: start: 19990729, end: 20020601
  8. CARISOPRODOL [Concomitant]
     Route: 065
     Dates: start: 19990909
  9. PRILOSEC [Concomitant]
     Route: 065
  10. ACETAMINOPHEN AND PROPOXYPHENE NAPSYLATE [Concomitant]
     Route: 065
     Dates: start: 19991210
  11. HYDROCODONE HYDROCHLORIDE [Concomitant]
     Route: 065
     Dates: start: 20000221
  12. SOMA [Concomitant]
     Route: 065
     Dates: start: 20000526, end: 20000901
  13. ALLEGRA [Concomitant]
     Route: 065
  14. MAXALT-MLT [Concomitant]
     Route: 065
  15. CELEXA [Concomitant]
     Route: 065
  16. DIOVAN [Concomitant]
     Route: 065
     Dates: start: 20010503, end: 20040326
  17. ALPRAZOLAM [Concomitant]
     Route: 065
     Dates: start: 20010905, end: 20030301
  18. CIPROFLOXACIN HCL [Concomitant]
     Route: 065
  19. LAMISIL [Concomitant]
     Route: 065
  20. PREMPRO [Concomitant]
     Route: 065
  21. ACYCLOVIR [Concomitant]
     Route: 065
  22. METRONIDAZOLE [Concomitant]
     Route: 065
  23. TIZANIDINE HYDROCHLORIDE [Concomitant]
     Route: 065
     Dates: start: 20030409, end: 20030501
  24. ULTRACET [Concomitant]
     Route: 065
  25. WELLBUTRIN [Concomitant]
     Route: 065
     Dates: start: 20030903
  26. XANAX [Concomitant]
     Route: 065
     Dates: start: 20030907
  27. ZYPREXA [Concomitant]
     Route: 065
  28. SKELAXIN [Concomitant]
     Route: 065
     Dates: start: 20031105, end: 20040301
  29. LIPITOR [Concomitant]
     Route: 065
     Dates: start: 20040401, end: 20040401
  30. LISINOPRIL [Concomitant]
     Route: 065
     Dates: start: 20040404
  31. TOPROL-XL [Concomitant]
     Route: 065
     Dates: start: 20040401
  32. DETROL [Concomitant]
     Route: 065
  33. MONOPRIL [Concomitant]
     Route: 065
     Dates: start: 19990204, end: 20010424

REACTIONS (7)
  - ANXIETY [None]
  - BACK DISORDER [None]
  - DEPRESSION [None]
  - HYPOKALAEMIA [None]
  - MYOCARDIAL INFARCTION [None]
  - PANIC ATTACK [None]
  - ROAD TRAFFIC ACCIDENT [None]
